FAERS Safety Report 17673996 (Version 1)
Quarter: 2020Q2

REPORT INFORMATION
  Report Type: Other
  Country: NL (occurrence: NL)
  Receive Date: 20200415
  Receipt Date: 20200415
  Transmission Date: 20200714
  Serious: Yes (Other)
  Sender: FDA-Public Use
  Company Number: NL-CELLTRION INC.-2020NL021116

PATIENT

DRUGS (1)
  1. INFLIXIMAB (UNKNOWN) [Suspect]
     Active Substance: INFLIXIMAB
     Indication: CROHN^S DISEASE
     Dosage: UNK
     Route: 042
     Dates: start: 200806, end: 20160927

REACTIONS (4)
  - Staphylococcal infection [Unknown]
  - Dermatitis [Unknown]
  - Alopecia [Unknown]
  - Eczema [Unknown]

NARRATIVE: CASE EVENT DATE: 2016
